FAERS Safety Report 7912482-9 (Version None)
Quarter: 2011Q4

REPORT INFORMATION
  Report Type: 
  Country: None (occurrence: None)
  Receive Date: 20111114
  Receipt Date: 20111107
  Transmission Date: 20120403
  Serious: No
  Sender: FDA-Public Use
  Company Number: US-PFIZER INC-2011275412

PATIENT
  Sex: Female

DRUGS (1)
  1. NIFEDIPINE [Suspect]

REACTIONS (4)
  - SYNCOPE [None]
  - MALAISE [None]
  - ABDOMINAL DISCOMFORT [None]
  - NAUSEA [None]
